FAERS Safety Report 11984068 (Version 13)
Quarter: 2019Q1

REPORT INFORMATION
  Report Type: Report from Study
  Country: CA (occurrence: CA)
  Receive Date: 20160201
  Receipt Date: 20190316
  Transmission Date: 20190417
  Serious: Yes (Hospitalization, Other)
  Sender: FDA-Public Use
  Company Number: PHHY2012CA059738

PATIENT
  Age: 59 Year
  Sex: Female

DRUGS (6)
  1. SANDOSTATIN LAR DEPOT [Interacting]
     Active Substance: OCTREOTIDE ACETATE
     Dosage: 10 MG, QMO (ONCE A MONTH)
     Route: 030
     Dates: start: 20141006
  2. SANDOSTATIN LAR DEPOT [Interacting]
     Active Substance: OCTREOTIDE ACETATE
     Dosage: 10 MG, QMO (EVERY 5 WEEKS)
     Route: 030
     Dates: start: 20141201
  3. SANDOSTATIN LAR DEPOT [Interacting]
     Active Substance: OCTREOTIDE ACETATE
     Dosage: 10 MG, QMO (EVERY 5 WEEKS)
     Route: 030
  4. HYDROCORTISONE. [Concomitant]
     Active Substance: HYDROCORTISONE
     Indication: PRODUCT USED FOR UNKNOWN INDICATION
     Dosage: 10 MG, UNK
     Route: 065
  5. HYDROCORTISONE. [Concomitant]
     Active Substance: HYDROCORTISONE
     Dosage: 18 MG, UNK
     Route: 065
  6. SANDOSTATIN LAR DEPOT [Suspect]
     Active Substance: OCTREOTIDE ACETATE
     Indication: ACROMEGALY
     Dosage: 10 MG, QMO (EVERY 5 WEEKS)
     Route: 030
     Dates: start: 20050101

REACTIONS (13)
  - Pain [Unknown]
  - Insulin tolerance test abnormal [Unknown]
  - Blood test abnormal [Unknown]
  - Product quality issue [Unknown]
  - Nephrolithiasis [Unknown]
  - Lung neoplasm malignant [Unknown]
  - Malaise [Unknown]
  - Inappropriate schedule of product administration [Unknown]
  - Blood pressure increased [Unknown]
  - Anxiety [Unknown]
  - Cystitis [Unknown]
  - Dysuria [Recovered/Resolved]
  - Appetite disorder [Recovering/Resolving]

NARRATIVE: CASE EVENT DATE: 20151111
